FAERS Safety Report 14505411 (Version 1)
Quarter: 2018Q1

REPORT INFORMATION
  Report Type: Spontaneous
  Country: PT (occurrence: PT)
  Receive Date: 20180208
  Receipt Date: 20180208
  Transmission Date: 20180509
  Serious: Yes (Other)
  Sender: FDA-Public Use
  Company Number: US-ASTRAZENECA-2018SE16257

PATIENT
  Age: 193 Day
  Sex: Male
  Weight: 6.5 kg

DRUGS (5)
  1. SYNAGIS [Suspect]
     Active Substance: PALIVIZUMAB
     Indication: LUNG DISORDER
     Dosage: MONTHLY
     Route: 030
     Dates: start: 20180109
  2. KREON [Concomitant]
     Active Substance: PANCRELIPASE
     Indication: CYSTIC FIBROSIS
     Dosage: EVERYDAY
     Route: 048
  3. SYNAGIS [Suspect]
     Active Substance: PALIVIZUMAB
     Indication: LUNG DISORDER
     Dosage: MONTHLY
     Route: 030
     Dates: start: 20171017, end: 20171212
  4. PROTOVIT [Concomitant]
     Indication: CYSTIC FIBROSIS
     Dosage: EVERYDAY
     Route: 048
  5. VIGANTOL [Concomitant]
     Active Substance: CHOLECALCIFEROL
     Indication: CYSTIC FIBROSIS
     Dosage: EVERYDAY
     Route: 048

REACTIONS (2)
  - Ear infection [Recovered/Resolved]
  - Respiratory syncytial virus infection [Recovered/Resolved]

NARRATIVE: CASE EVENT DATE: 20171226
